FAERS Safety Report 11522799 (Version 1)
Quarter: 2015Q3

REPORT INFORMATION
  Report Type: Spontaneous
  Country: US (occurrence: US)
  Receive Date: 20150918
  Receipt Date: 20150918
  Transmission Date: 20151125
  Serious: Yes (Other)
  Sender: FDA-Public Use
  Company Number: US-ROCHE-679337

PATIENT
  Age: 53 Year
  Sex: Female
  Weight: 69.9 kg

DRUGS (4)
  1. PEGASYS [Suspect]
     Active Substance: PEGINTERFERON ALFA-2A
     Indication: HEPATITIS C
     Route: 058
     Dates: start: 20090713, end: 20100302
  2. CLONAZEPAM. [Concomitant]
     Active Substance: CLONAZEPAM
     Indication: ANXIETY
     Route: 048
  3. CLONAZEPAM. [Concomitant]
     Active Substance: CLONAZEPAM
     Dosage: TAKEN AT NIGHT.
     Route: 048
  4. RIBASPHERE RIBAPAK [Suspect]
     Active Substance: RIBAVIRIN
     Indication: HEPATITIS C
     Route: 048
     Dates: start: 20090713, end: 20100302

REACTIONS (12)
  - Sarcoidosis [Unknown]
  - Productive cough [Unknown]
  - Diarrhoea [Recovered/Resolved]
  - Dizziness [Recovered/Resolved]
  - Erythema [Not Recovered/Not Resolved]
  - Ill-defined disorder [Unknown]
  - Hypoaesthesia [Recovered/Resolved]
  - Dyspnoea [Unknown]
  - Acne [Not Recovered/Not Resolved]
  - Vomiting [Recovered/Resolved]
  - Rash [Unknown]
  - Nausea [Recovered/Resolved]

NARRATIVE: CASE EVENT DATE: 200908
